FAERS Safety Report 4921501-3 (Version None)
Quarter: 2006Q1

REPORT INFORMATION
  Report Type: 
  Country: None (occurrence: None)
  Receive Date: 20060224
  Receipt Date: 20021105
  Transmission Date: 20060701
  Serious: Yes (Death)
  Sender: FDA-Public Use
  Company Number: NZ-ABBOTT-02P-118-0203661-00

PATIENT
  Sex: Male

DRUGS (1)
  1. REDUCTIL 10 MG [Suspect]
     Indication: DRUG USE FOR UNKNOWN INDICATION
     Dates: start: 20011116, end: 20011130

REACTIONS (1)
  - ROAD TRAFFIC ACCIDENT [None]
